FAERS Safety Report 4475800-2 (Version None)
Quarter: 2004Q4

REPORT INFORMATION
  Report Type: 
  Country: None (occurrence: None)
  Receive Date: 20041015
  Receipt Date: 20041007
  Transmission Date: 20050328
  Serious: Yes (Disabling, Other)
  Sender: FDA-Public Use
  Company Number: GB-GLAXOSMITHKLINE-B0347666A

PATIENT
  Age: 59 Year
  Sex: Male

DRUGS (1)
  1. RELIFEX [Suspect]
     Indication: ARTHRITIS
     Dosage: 1G PER DAY
     Route: 048
     Dates: start: 20040913, end: 20040916

REACTIONS (3)
  - BLISTER [None]
  - HOARSENESS [None]
  - URTICARIA [None]
